FAERS Safety Report 16925584 (Version 12)
Quarter: 2020Q4

REPORT INFORMATION
  Report Type: Report from Study
  Country: US (occurrence: US)
  Receive Date: 20191016
  Receipt Date: 20201231
  Transmission Date: 20210113
  Serious: Yes (Life-Threatening, Hospitalization, Other)
  Sender: FDA-Public Use
  Company Number: US-MALLINCKRODT-T201905655

PATIENT
  Age: 22 Year
  Sex: Male
  Weight: 99 kg

DRUGS (6)
  1. REPOSITORY CORTICOTROPIN INJECTION [Suspect]
     Active Substance: CORTICOTROPIN
     Indication: NEPHROTIC SYNDROME
     Dosage: 80 UNITS 2XWK
     Route: 065
     Dates: start: 20191005, end: 2020
  2. PREDNISONE. [Concomitant]
     Active Substance: PREDNISONE
     Indication: PRODUCT USED FOR UNKNOWN INDICATION
     Dosage: UNK
     Route: 065
  3. REPOSITORY CORTICOTROPIN INJECTION [Suspect]
     Active Substance: CORTICOTROPIN
     Dosage: 80 UNITS/1 ML, 2 TIMES PER WEEK
     Route: 058
     Dates: start: 20200323, end: 2020
  4. MORPHINE [Concomitant]
     Active Substance: MORPHINE
     Indication: PRODUCT USED FOR UNKNOWN INDICATION
     Dosage: UNK
     Route: 065
  5. REPOSITORY CORTICOTROPIN INJECTION [Suspect]
     Active Substance: CORTICOTROPIN
     Dosage: UNK
     Route: 065
     Dates: start: 2020
  6. REPOSITORY CORTICOTROPIN INJECTION [Suspect]
     Active Substance: CORTICOTROPIN
     Indication: PROTEINURIA
     Dosage: 80 UNITS/1 ML, 2 TIMES PER WEEK TUESDAY, FRIDAY
     Route: 058
     Dates: start: 20190716, end: 2019

REACTIONS (37)
  - Urticaria [Unknown]
  - Chest pain [Not Recovered/Not Resolved]
  - Cerebral thrombosis [Unknown]
  - Head injury [Unknown]
  - Sneezing [Unknown]
  - Dizziness [Unknown]
  - Nasal congestion [Unknown]
  - Loss of consciousness [Not Recovered/Not Resolved]
  - Syncope [Unknown]
  - Hypertension [Recovering/Resolving]
  - Illness [Not Recovered/Not Resolved]
  - Pain [Not Recovered/Not Resolved]
  - Stress [Unknown]
  - Asthma [Recovering/Resolving]
  - Urine abnormality [Unknown]
  - Insomnia [Unknown]
  - Hyperphagia [Unknown]
  - Product dose omission issue [Recovered/Resolved]
  - Proteinuria [Not Recovered/Not Resolved]
  - Tremor [Unknown]
  - Weight increased [Not Recovered/Not Resolved]
  - Fall [Unknown]
  - Urinary straining [Unknown]
  - Nervousness [Unknown]
  - Fluid retention [Unknown]
  - Pollakiuria [Unknown]
  - Oropharyngeal pain [Unknown]
  - Blood glucose decreased [Not Recovered/Not Resolved]
  - Abdominal pain upper [Not Recovered/Not Resolved]
  - Dyschezia [Not Recovered/Not Resolved]
  - Pain in extremity [Not Recovered/Not Resolved]
  - Cough [Unknown]
  - Vomiting [Not Recovered/Not Resolved]
  - Headache [Not Recovered/Not Resolved]
  - Loss of control of legs [Unknown]
  - Muscular weakness [Unknown]
  - Decreased appetite [Unknown]

NARRATIVE: CASE EVENT DATE: 2019
